FAERS Safety Report 9334441 (Version 1)
Quarter: 2013Q2

REPORT INFORMATION
  Report Type: Spontaneous
  Country: US (occurrence: US)
  Receive Date: 20130606
  Receipt Date: 20130606
  Transmission Date: 20140414
  Serious: No
  Sender: FDA-Public Use
  Company Number: US-AMGEN-USASP2013021790

PATIENT
  Age: 77 Year
  Sex: Male

DRUGS (6)
  1. PROLIA [Suspect]
     Indication: OSTEOPOROSIS
     Dosage: UNK
     Dates: start: 20121206
  2. CENTRUM SILVER                     /02363801/ [Concomitant]
  3. CALCIUM WITH VITAMIN D             /00944201/ [Concomitant]
  4. DOXYCYCLINE [Concomitant]
  5. SIMVASTATIN [Concomitant]
  6. DOXAZOSIN [Concomitant]

REACTIONS (1)
  - Pain in jaw [Recovered/Resolved]
